FAERS Safety Report 4521711-3 (Version None)
Quarter: 2004Q4

REPORT INFORMATION
  Report Type: 
  Country: None (occurrence: None)
  Receive Date: 20041206
  Receipt Date: 20041126
  Transmission Date: 20050328
  Serious: Yes (Hospitalization)
  Sender: FDA-Public Use
  Company Number: 2004-05-1987

PATIENT
  Age: 52 Year
  Sex: Male

DRUGS (2)
  1. REBETOL [Suspect]
     Indication: HEPATITIS C
     Dosage: 600 MG ORAL
     Route: 048
     Dates: start: 20030416, end: 20030926
  2. INTRON A [Suspect]
     Indication: HEPATITIS C
     Dosage: 10 MU 6-3/WK* INTRAMUSCULAR
     Route: 030
     Dates: start: 20030416, end: 20030926

REACTIONS (6)
  - ARTHRALGIA [None]
  - AUTOIMMUNE HEPATITIS [None]
  - CONDITION AGGRAVATED [None]
  - HEPATITIS C [None]
  - MALAISE [None]
  - PYREXIA [None]
